FAERS Safety Report 24531321 (Version 1)
Quarter: 2024Q4

REPORT INFORMATION
  Report Type: Report from Study
  Country: CA (occurrence: CA)
  Receive Date: 20241022
  Receipt Date: 20241022
  Transmission Date: 20250115
  Serious: No
  Sender: ROCHE
  Company Number: CA-ROCHE-1959291

PATIENT
  Age: 56 Year
  Sex: Female

DRUGS (2)
  1. PULMOZYME [Suspect]
     Active Substance: DORNASE ALFA
     Indication: Cystic fibrosis
     Dosage: INHALE 2.5MG DAILY VIA NEBULIZER
     Route: 055
     Dates: start: 20170405, end: 20170612
  2. PULMOZYME [Suspect]
     Active Substance: DORNASE ALFA
     Route: 055
     Dates: start: 20170405

REACTIONS (9)
  - Headache [Unknown]
  - Sinus congestion [Unknown]
  - Nausea [Unknown]
  - Chest discomfort [Recovered/Resolved]
  - Insomnia [Unknown]
  - Anxiety [Unknown]
  - Ill-defined disorder [Unknown]
  - Weight decreased [Unknown]
  - Cough [Not Recovered/Not Resolved]

NARRATIVE: CASE EVENT DATE: 20170413
